FAERS Safety Report 18261541 (Version 5)
Quarter: 2021Q1

REPORT INFORMATION
  Report Type: Other
  Country: DE (occurrence: DE)
  Receive Date: 20200914
  Receipt Date: 20210312
  Transmission Date: 20210419
  Serious: Yes (Other)
  Sender: FDA-Public Use
  Company Number: DE-ROCHE-2490647

PATIENT
  Age: 65 Year
  Sex: Female

DRUGS (11)
  1. OCREVUS [Suspect]
     Active Substance: OCRELIZUMAB
     Indication: PRIMARY PROGRESSIVE MULTIPLE SCLEROSIS
     Route: 042
     Dates: start: 20191128
  2. DEKRISTOL [Concomitant]
     Active Substance: CHOLECALCIFEROL
  3. OCREVUS [Suspect]
     Active Substance: OCRELIZUMAB
     Route: 042
     Dates: start: 20200129
  4. OCREVUS [Suspect]
     Active Substance: OCRELIZUMAB
     Route: 042
     Dates: start: 20200722
  5. BIPRETERAX [Concomitant]
     Active Substance: INDAPAMIDE\PERINDOPRIL
     Dosage: 5 MG/1.25 MG
  6. NOVAMINSULFON [Concomitant]
     Active Substance: METAMIZOLE
     Dosage: 1000 TO 4000 MG
  7. CBD OIL [Concomitant]
     Active Substance: CANNABIDIOL\HERBALS
     Dosage: 5%
  8. OCREVUS [Suspect]
     Active Substance: OCRELIZUMAB
     Route: 042
     Dates: start: 20200115, end: 20200115
  9. EFEROX [Concomitant]
     Active Substance: LEVOTHYROXINE SODIUM
     Dosage: 50/75 MICRO GRAMS
  10. SALOFALK [Concomitant]
  11. PROPIONIC ACID [Concomitant]
     Active Substance: PROPIONIC ACID

REACTIONS (14)
  - Infusion related reaction [Recovered/Resolved]
  - Nasopharyngitis [Recovered/Resolved]
  - Pain in extremity [Recovered/Resolved]
  - Oral herpes [Recovered/Resolved]
  - Tendon injury [Not Recovered/Not Resolved]
  - Pain in extremity [Not Recovered/Not Resolved]
  - Muscular weakness [Not Recovered/Not Resolved]
  - Fatigue [Recovered/Resolved]
  - Gait disturbance [Not Recovered/Not Resolved]
  - Pulpitis dental [Recovered/Resolved]
  - Osteoarthritis [Not Recovered/Not Resolved]
  - Tendon rupture [Not Recovered/Not Resolved]
  - Headache [Recovered/Resolved]
  - Muscle spasticity [Not Recovered/Not Resolved]

NARRATIVE: CASE EVENT DATE: 20191128
